FAERS Safety Report 21671977 (Version 1)
Quarter: 2022Q4

REPORT INFORMATION
  Report Type: Spontaneous
  Country: IT (occurrence: IT)
  Receive Date: 20221202
  Receipt Date: 20221202
  Transmission Date: 20230113
  Serious: Yes (Other)
  Sender: FDA-Public Use
  Company Number: IT-STRIDES ARCOLAB LIMITED-2022SP016119

PATIENT
  Age: 10 Year
  Sex: Male

DRUGS (9)
  1. ETOPOSIDE [Suspect]
     Active Substance: ETOPOSIDE
     Indication: Desmoplastic small round cell tumour
     Dosage: 150 MILLIGRAM/SQ. METER, CYCLICAL(ON DAYS 1 TO 3 DURING IVE REGIMEN)
     Route: 065
  2. IFOSFAMIDE [Suspect]
     Active Substance: IFOSFAMIDE
     Indication: Desmoplastic small round cell tumour
     Dosage: 3 G/M2, CYCLICAL (ON DAYS 1 AND 2) (IVA REGIMEN) (SCHEDULED FOR 4 CYCLES)
     Route: 065
  3. IFOSFAMIDE [Suspect]
     Active Substance: IFOSFAMIDE
     Dosage: 3 G/M2 (3 G/M2 ON DAYS 1 AND 2 DURING ALTERNATING COURSES OF IVAD REGIMEN AND IVE REGIMEN)
     Route: 065
  4. IFOSFAMIDE [Suspect]
     Active Substance: IFOSFAMIDE
     Dosage: UNK (DOSE WAS REDUCED TO 50% IN 8 TH IVE CYCLE DUE TO HEMATURIA)
     Route: 065
  5. VINCRISTINE [Suspect]
     Active Substance: VINCRISTINE
     Indication: Desmoplastic small round cell tumour
     Dosage: 1.5 MILLIGRAM/SQ. METER,CYCLICAL (ON DAYS 1, 8 AND 15 DURING IVA REGIMEN SCHEDULED FOR 4 CYCLES)
     Route: 065
  6. VINCRISTINE [Suspect]
     Active Substance: VINCRISTINE
     Dosage: 1.5 MILLIGRAM/SQ. METER, CYCLICAL (ON DAYS 1, 8 AND 15 DURING ALTERNATING COURSES OF IVAD REGIMEN AN
     Route: 065
  7. ADRIAMYCIN [Concomitant]
     Active Substance: DOXORUBICIN HYDROCHLORIDE
     Indication: Desmoplastic small round cell tumour
     Dosage: 40 MILLIGRAM/SQ. METER (ON DAYS 1 AND 2 DURING IVAD REGIMEN)
     Route: 065
  8. ACTINOMYCIN D [Concomitant]
     Active Substance: DACTINOMYCIN
     Indication: Desmoplastic small round cell tumour
     Dosage: 1.5 MILLIGRAM/SQ. METER, CYCLICAL(DURING IVA REGIMEN SCHEDULED FOR 4 CYCLES)
     Route: 065
  9. MESNA [Concomitant]
     Active Substance: MESNA
     Indication: Prophylaxis
     Dosage: UNK (DOSE EQUIVALENT TO IFOSFAMIDE)
     Route: 065

REACTIONS (2)
  - Haematuria [Unknown]
  - Off label use [Unknown]
